FAERS Safety Report 25378453 (Version 1)
Quarter: 2025Q2

REPORT INFORMATION
  Report Type: Spontaneous
  Country: FR (occurrence: FR)
  Receive Date: 20250530
  Receipt Date: 20250530
  Transmission Date: 20250716
  Serious: Yes (Disabling)
  Sender: MERCK SHARP & DOHME LLC
  Company Number: None

PATIENT
  Age: 64 Year
  Sex: Male
  Weight: 62 kg

DRUGS (3)
  1. JANUVIA [Suspect]
     Active Substance: SITAGLIPTIN PHOSPHATE
     Indication: Diabetes mellitus
     Route: 048
     Dates: start: 202501
  2. METHOTREXATE [Suspect]
     Active Substance: METHOTREXATE
     Indication: Idiopathic pulmonary fibrosis
     Route: 058
     Dates: start: 20250103, end: 20250221
  3. OFEV [Suspect]
     Active Substance: NINTEDANIB
     Indication: Interstitial lung disease
     Route: 048
     Dates: start: 202404, end: 20250223

REACTIONS (1)
  - Acute cholecystitis necrotic [Not Recovered/Not Resolved]

NARRATIVE: CASE EVENT DATE: 20250226
